FAERS Safety Report 18688196 (Version 1)
Quarter: 2020Q4

REPORT INFORMATION
  Report Type: Report from Study
  Country: IT (occurrence: IT)
  Receive Date: 20201231
  Receipt Date: 20201231
  Transmission Date: 20210114
  Serious: Yes (Hospitalization)
  Sender: FDA-Public Use
  Company Number: IT-TEVA-2020-IT-1863916

PATIENT
  Age: 84 Year
  Sex: Female

DRUGS (10)
  1. ARANESP 150 MICROGRAMS SOLUTION FOR INJECTION IN PRE-FILLED SYRINGE [Concomitant]
  2. TRIATEC  5 MG COMPRESSE [Concomitant]
     Active Substance: RAMIPRIL
  3. NEXIUM 40 MG COMPRESSE GASTRORESISTENTI [Concomitant]
  4. LEDERFOLIN 7,5 MG COMPRESSE [Concomitant]
  5. METFORMIN [Suspect]
     Active Substance: METFORMIN HYDROCHLORIDE
     Indication: TYPE 2 DIABETES MELLITUS
     Dosage: 1500 MG
     Route: 048
     Dates: start: 20201103, end: 20201107
  6. GLICLAZIDE [Suspect]
     Active Substance: GLICLAZIDE
     Indication: TYPE 2 DIABETES MELLITUS
     Dosage: 60 MG
     Route: 048
     Dates: start: 20201103, end: 20201107
  7. ZYLORIC 300 MG COMPRESSE [Concomitant]
     Active Substance: ALLOPURINOL
  8. LASIX [Concomitant]
     Active Substance: FUROSEMIDE
  9. ACICLOVIR [Concomitant]
     Active Substance: ACYCLOVIR
     Dosage: 400 MG
  10. KANRENOL  100 COMPRESSE [Concomitant]
     Active Substance: CANRENOATE POTASSIUM
     Dosage: 50 MG

REACTIONS (3)
  - Overdose [Recovered/Resolved]
  - Hypoglycaemic coma [Recovered/Resolved]
  - Drug interaction [Recovered/Resolved]

NARRATIVE: CASE EVENT DATE: 20201106
